FAERS Safety Report 25210756 (Version 1)
Quarter: 2025Q2

REPORT INFORMATION
  Report Type: Spontaneous
  Country: US (occurrence: US)
  Receive Date: 20250417
  Receipt Date: 20250417
  Transmission Date: 20250716
  Serious: No
  Sender: Kenvue
  Company Number: US-KENVUE-20250401323

PATIENT
  Sex: Female

DRUGS (3)
  1. CHILDRENS BENADRYL DYE-FREE ALLERGY [Suspect]
     Active Substance: DIPHENHYDRAMINE HYDROCHLORIDE
     Indication: Arthropod bite
     Route: 065
     Dates: start: 2024
  2. CHILDRENS BENADRYL DYE-FREE ALLERGY [Suspect]
     Active Substance: DIPHENHYDRAMINE HYDROCHLORIDE
     Indication: Anaphylactic shock
  3. FAMOTIDINE [Suspect]
     Active Substance: FAMOTIDINE
     Indication: Arthropod bite
     Route: 065

REACTIONS (2)
  - Product administered to patient of inappropriate age [Unknown]
  - Product use in unapproved indication [Unknown]

NARRATIVE: CASE EVENT DATE: 20240101
